FAERS Safety Report 21146202 (Version 1)
Quarter: 2022Q3

REPORT INFORMATION
  Report Type: Spontaneous
  Country: US (occurrence: US)
  Receive Date: 20220729
  Receipt Date: 20220729
  Transmission Date: 20221027
  Serious: No
  Sender: FDA-Public Use
  Company Number: US-ORGANON-O2207USA001369

PATIENT
  Age: 45 Year
  Sex: Male

DRUGS (7)
  1. PREGNYL [Suspect]
     Active Substance: CHORIOGONADOTROPIN ALFA
     Indication: Blood testosterone decreased
     Dosage: 2500 IU INTERNATIONAL UNIT(S)(25 ML), QW (ONCE PER WEEK)
     Route: 030
     Dates: start: 202110
  2. STERILE WATER [Suspect]
     Active Substance: WATER
     Dosage: QW (ONCE PER WEEK)
     Dates: start: 202110
  3. OZEMPIC [Concomitant]
     Active Substance: SEMAGLUTIDE
     Dosage: UNK
  4. CHOLECALCIFEROL [Concomitant]
     Active Substance: CHOLECALCIFEROL
     Dosage: UNK
  5. LOSARTAN [Concomitant]
     Active Substance: LOSARTAN
  6. JARDIANCE [Concomitant]
     Active Substance: EMPAGLIFLOZIN
  7. TIZANIDINE [Concomitant]
     Active Substance: TIZANIDINE
     Dosage: UNK

REACTIONS (3)
  - Liver function test abnormal [Not Recovered/Not Resolved]
  - Feeling abnormal [Not Recovered/Not Resolved]
  - Drug ineffective [Unknown]

NARRATIVE: CASE EVENT DATE: 20220601
